FAERS Safety Report 18420548 (Version 2)
Quarter: 2020Q4

REPORT INFORMATION
  Report Type: Spontaneous
  Country: US (occurrence: US)
  Receive Date: 20201023
  Receipt Date: 20201214
  Transmission Date: 20210114
  Serious: Yes (Hospitalization, Other)
  Sender: FDA-Public Use
  Company Number: US-PFIZER INC-2020407712

PATIENT
  Age: 81 Year
  Sex: Female
  Weight: 50.35 kg

DRUGS (6)
  1. METOPROLOL. [Concomitant]
     Active Substance: METOPROLOL
     Dosage: 50 MG, 2X/DAY
  2. ELIQUIS [Concomitant]
     Active Substance: APIXABAN
     Indication: ANTICOAGULANT THERAPY
     Dosage: UNK
  3. VYNDAQEL [Suspect]
     Active Substance: TAFAMIDIS MEGLUMINE
     Indication: CARDIAC AMYLOIDOSIS
     Dosage: 80 MG, DAILY (4 20MG CAPSULES A DAY BY MOUTH)
     Route: 048
     Dates: start: 20190724
  4. VYNDAQEL [Suspect]
     Active Substance: TAFAMIDIS MEGLUMINE
     Indication: LEFT VENTRICULAR FAILURE
  5. ASPIRIN [ACETYLSALICYLIC ACID] [Concomitant]
     Active Substance: ASPIRIN
     Indication: ANTICOAGULANT THERAPY
     Dosage: UNK
  6. PRAVASTATIN. [Concomitant]
     Active Substance: PRAVASTATIN
     Dosage: UNK
     Dates: end: 20191011

REACTIONS (16)
  - Arthralgia [Unknown]
  - Atrial fibrillation [Unknown]
  - Troponin increased [Unknown]
  - Chest pain [Not Recovered/Not Resolved]
  - Loss of consciousness [Unknown]
  - Dizziness [Unknown]
  - Hepatic enzyme increased [Unknown]
  - Syncope [Unknown]
  - Atrial tachycardia [Unknown]
  - Bradycardia [Unknown]
  - Coronary artery disease [Unknown]
  - Dysphagia [Unknown]
  - Sinus node dysfunction [Unknown]
  - Disease progression [Unknown]
  - Aspartate aminotransferase increased [Unknown]
  - Hypoaesthesia [Unknown]

NARRATIVE: CASE EVENT DATE: 20201015
